FAERS Safety Report 15651338 (Version 3)
Quarter: 2019Q4

REPORT INFORMATION
  Report Type: Spontaneous
  Country: CA (occurrence: CA)
  Receive Date: 20181123
  Receipt Date: 20191220
  Transmission Date: 20200122
  Serious: Yes (Hospitalization, Congenital Anomaly)
  Sender: FDA-Public Use
  Company Number: CA-ALLERGAN-1854400US

PATIENT
  Weight: 2 kg

DRUGS (10)
  1. ESCITALOPRAM OXALATE - BP [Suspect]
     Active Substance: ESCITALOPRAM OXALATE
     Indication: MATERNAL EXPOSURE TIMING UNSPECIFIED
     Dosage: 20 MG, QD
     Route: 064
  2. BENZTROPINE MESYLATE. [Suspect]
     Active Substance: BENZTROPINE MESYLATE
     Indication: MATERNAL EXPOSURE TIMING UNSPECIFIED
     Dosage: 1.5 MG, QD
     Route: 064
  3. QUETIAPINE. [Suspect]
     Active Substance: QUETIAPINE
     Indication: MATERNAL EXPOSURE TIMING UNSPECIFIED
     Dosage: 300 MG, Q12H
     Route: 064
  4. RABEPRAZOLE [Suspect]
     Active Substance: RABEPRAZOLE
     Indication: MATERNAL EXPOSURE TIMING UNSPECIFIED
     Dosage: UNK
     Route: 064
  5. ZOPICLONE [Suspect]
     Active Substance: ZOPICLONE
     Indication: MATERNAL EXPOSURE TIMING UNSPECIFIED
     Dosage: UNK
     Route: 064
  6. ESCITALOPRAM OXALATE - BP [Suspect]
     Active Substance: ESCITALOPRAM OXALATE
     Dosage: 20 MG, QD
     Route: 064
  7. METHADOSE [Suspect]
     Active Substance: METHADONE HYDROCHLORIDE
     Indication: MATERNAL EXPOSURE TIMING UNSPECIFIED
     Dosage: 70 MG, QD
     Route: 064
  8. BENZTROPINE MESYLATE. [Suspect]
     Active Substance: BENZTROPINE MESYLATE
     Dosage: 1.5 MG, QD
     Route: 064
  9. GABAPENTIN. [Suspect]
     Active Substance: GABAPENTIN
     Indication: MATERNAL EXPOSURE TIMING UNSPECIFIED
     Dosage: 1800 MG, QD
     Route: 064
  10. NORTRIPTYLINE [Suspect]
     Active Substance: NORTRIPTYLINE
     Indication: MATERNAL EXPOSURE TIMING UNSPECIFIED
     Dosage: 20 MG, QD
     Route: 064

REACTIONS (8)
  - Crying [Recovered/Resolved]
  - Premature baby [Recovered/Resolved]
  - Trismus [Recovered/Resolved]
  - Tremor [Recovered/Resolved]
  - Sleep disorder [Recovered/Resolved]
  - Drug withdrawal syndrome neonatal [Recovered/Resolved]
  - Muscle tone disorder [Recovered/Resolved]
  - Foetal exposure during pregnancy [Recovered/Resolved]
